FAERS Safety Report 4521477-7 (Version None)
Quarter: 2004Q4

REPORT INFORMATION
  Report Type: 
  Country: None (occurrence: None)
  Receive Date: 20041025
  Receipt Date: 20040520
  Transmission Date: 20050328
  Serious: Yes (Other)
  Sender: FDA-Public Use
  Company Number: HQWYE068821MAY04

PATIENT
  Sex: Female

DRUGS (1)
  1. PREMARIN [Suspect]
     Dosage: 0.3 MG DAILY 3 WEEKS OUT OF 4; CURRENTLY 0.3 MG EVERY OTHER DAY, ORAL
     Route: 048
     Dates: start: 19840101

REACTIONS (4)
  - CEREBROVASCULAR ACCIDENT [None]
  - DRUG INEFFECTIVE [None]
  - HAIR TEXTURE ABNORMAL [None]
  - VAGINAL HAEMORRHAGE [None]
